FAERS Safety Report 15881458 (Version 1)
Quarter: 2019Q1

REPORT INFORMATION
  Report Type: Spontaneous
  Country: IE (occurrence: IE)
  Receive Date: 20190128
  Receipt Date: 20190128
  Transmission Date: 20190417
  Serious: Yes (Hospitalization)
  Sender: FDA-Public Use
  Company Number: IE-FRESENIUS KABI-FK201900641

PATIENT
  Sex: Female

DRUGS (13)
  1. AMINOVEN 15% [Suspect]
     Active Substance: AMINO ACIDS
     Indication: NEUROENDOCRINE CARCINOMA
     Dosage: UNKNOWN
     Route: 042
  2. GLUCOSE 50% [Suspect]
     Active Substance: DEXTROSE
     Indication: NEUROENDOCRINE CARCINOMA
     Route: 042
  3. POTASSIUM CHLORIDE. [Suspect]
     Active Substance: POTASSIUM CHLORIDE
     Indication: NEUROENDOCRINE CARCINOMA
     Dosage: UNKNOWN
     Route: 042
  4. SODIUM GLYCEROPHOSPHATE [Suspect]
     Active Substance: SODIUM GLYCEROPHOSPHATE
     Indication: NEUROENDOCRINE CARCINOMA
     Dosage: UNKNOWN
     Route: 042
  5. SOLUVIT N [Suspect]
     Active Substance: VITAMINS
     Indication: NEUROENDOCRINE CARCINOMA
     Dosage: UNKNOWN
     Route: 042
  6. SMOFLIPID [Suspect]
     Active Substance: FISH OIL\MEDIUM-CHAIN TRIGLYCERIDES\OLIVE OIL\SOYBEAN OIL
     Indication: NEUROENDOCRINE CARCINOMA
     Dosage: UNKNOWN
     Route: 042
  7. ADDAMEL N [Suspect]
     Active Substance: CHROMIC CHLORIDE\CUPROUS CHLORIDE\FERRIC CHLORIDE\MANGANESE CHLORIDE\POTASSIUM IODIDE\SODIUM FLUORIDE\SODIUM MOLYBDATE DIHYDRATE\SODIUM SELENITE\ZINC CHLORIDE
     Indication: NEUROENDOCRINE CARCINOMA
     Route: 042
  8. WATER FOR INJECTIONS [Suspect]
     Active Substance: WATER
     Indication: NEUROENDOCRINE CARCINOMA
     Dosage: UNKNOWN
     Route: 042
  9. MAGNESIUM SULFATE. [Suspect]
     Active Substance: MAGNESIUM SULFATE
     Indication: NEUROENDOCRINE CARCINOMA
     Dosage: UNKNOWN
     Route: 042
  10. ASCORBIC ACID. [Suspect]
     Active Substance: ASCORBIC ACID
     Indication: NEUROENDOCRINE CARCINOMA
     Dosage: UNKNOWN
     Route: 042
  11. VITALIPID ADULT [Suspect]
     Active Substance: ERGOCALCIFEROL\PHYTONADIONE\RETINOL\TOCOPHEROL
     Indication: NEUROENDOCRINE CARCINOMA
     Dosage: UNKNOWN
     Route: 042
  12. SODIUM CHLORIDE. [Suspect]
     Active Substance: SODIUM CHLORIDE
     Indication: NEUROENDOCRINE CARCINOMA
     Dosage: UNKNOWN
     Route: 042
  13. CALCIUM CHLORIDE. [Suspect]
     Active Substance: CALCIUM CHLORIDE
     Indication: NEUROENDOCRINE CARCINOMA
     Dosage: UNKNOWN
     Route: 042

REACTIONS (2)
  - Dyspnoea [Not Recovered/Not Resolved]
  - Product use in unapproved indication [Not Recovered/Not Resolved]
